FAERS Safety Report 13286771 (Version 3)
Quarter: 2019Q1

REPORT INFORMATION
  Report Type: Spontaneous
  Country: CA (occurrence: CA)
  Receive Date: 20170301
  Receipt Date: 20190228
  Transmission Date: 20190417
  Serious: Yes (Other)
  Sender: FDA-Public Use
  Company Number: CA-JNJFOC-20170220896

PATIENT
  Sex: Male

DRUGS (6)
  1. LORAZEPAM. [Concomitant]
     Active Substance: LORAZEPAM
     Indication: PRODUCT USED FOR UNKNOWN INDICATION
     Dosage: 2 OR 3 TABS PRN
     Route: 065
  2. RISPERIDONE. [Concomitant]
     Active Substance: RISPERIDONE
     Indication: PRODUCT USED FOR UNKNOWN INDICATION
     Dosage: 3 MG (1.5) TABS PO QHS
     Route: 048
  3. ROGAINE [Suspect]
     Active Substance: MINOXIDIL
     Indication: HAIR GROWTH ABNORMAL
     Dosage: APPLY TO SCALP BID
     Route: 061
     Dates: start: 20020812, end: 200705
  4. ZYPREXA [Concomitant]
     Active Substance: OLANZAPINE
     Indication: PRODUCT USED FOR UNKNOWN INDICATION
     Dosage: 5 MG 4 TAB AT HS
     Route: 065
  5. ROGAINE [Suspect]
     Active Substance: MINOXIDIL
     Route: 061
  6. PROCYCLIDINE [Concomitant]
     Active Substance: PROCYCLIDINE
     Indication: PRODUCT USED FOR UNKNOWN INDICATION
     Dosage: 1 TAB QAM
     Route: 065

REACTIONS (13)
  - Burning sensation [Not Recovered/Not Resolved]
  - Application site dryness [Recovering/Resolving]
  - Ear pain [Recovering/Resolving]
  - Skin disorder [Not Recovered/Not Resolved]
  - Eczema [Recovering/Resolving]
  - Formication [Not Recovered/Not Resolved]
  - Localised infection [Recovering/Resolving]
  - Drain removal [Recovering/Resolving]
  - Pain [Not Recovered/Not Resolved]
  - Application site erythema [Recovering/Resolving]
  - Weight decreased [Recovering/Resolving]
  - Insomnia [Recovering/Resolving]
  - Hair growth abnormal [Not Recovered/Not Resolved]
